FAERS Safety Report 14198108 (Version 1)
Quarter: 2017Q4

REPORT INFORMATION
  Report Type: Spontaneous
  Country: US (occurrence: US)
  Receive Date: 20171116
  Receipt Date: 20171116
  Transmission Date: 20180321
  Serious: Yes (Life-Threatening)
  Sender: FDA-Public Use
  Company Number: None

PATIENT
  Age: 74 Year
  Sex: Male
  Weight: 82.5 kg

DRUGS (1)
  1. PEMBROLIZUMAB. [Suspect]
     Active Substance: PEMBROLIZUMAB
     Indication: METASTATIC MALIGNANT MELANOMA
     Dosage: ?          OTHER FREQUENCY:ONCE;?
     Route: 042
     Dates: start: 20170928, end: 20170928

REACTIONS (7)
  - Dyspnoea [None]
  - Diplopia [None]
  - Myopathy [None]
  - Haemorrhagic anaemia [None]
  - Myalgia [None]
  - Post procedural haemorrhage [None]
  - Asthenia [None]

NARRATIVE: CASE EVENT DATE: 20171026
